FAERS Safety Report 4930350-1 (Version None)
Quarter: 2006Q1

REPORT INFORMATION
  Report Type: 
  Country: None (occurrence: None)
  Receive Date: 20060302
  Receipt Date: 20020418
  Transmission Date: 20060701
  Serious: Yes (Life-Threatening, Hospitalization)
  Sender: FDA-Public Use
  Company Number: US-GLAXOSMITHKLINE-A0366519A

PATIENT
  Age: 55 Year
  Sex: Female

DRUGS (4)
  1. PAXIL [Suspect]
     Route: 048
     Dates: start: 19980803, end: 20011102
  2. LITHIUM [Suspect]
     Dates: start: 20010601
  3. MOOD MEDICATION [Concomitant]
     Dates: start: 20010924
  4. DEPAKOTE [Concomitant]

REACTIONS (14)
  - ANGER [None]
  - ANXIETY [None]
  - DIZZINESS [None]
  - DRUG INEFFECTIVE [None]
  - DRUG WITHDRAWAL SYNDROME [None]
  - FEELING JITTERY [None]
  - GAIT DISTURBANCE [None]
  - HEADACHE [None]
  - HYPERHIDROSIS [None]
  - MANIA [None]
  - NAUSEA [None]
  - SUICIDAL IDEATION [None]
  - SUICIDE ATTEMPT [None]
  - THERAPEUTIC RESPONSE DECREASED [None]
